FAERS Safety Report 6148358-X (Version None)
Quarter: 2009Q2

REPORT INFORMATION
  Report Type: 
  Country: None (occurrence: None)
  Receive Date: 20090402
  Receipt Date: 20090108
  Transmission Date: 20091009
  Serious: No
  Sender: FDA-Public Use
  Company Number: 1000004201

PATIENT
  Sex: Female

DRUGS (1)
  1. BYSTOLIC [Suspect]
     Indication: BLOOD PRESSURE INCREASED
     Dosage: 1 IN 1 D,ORAL
     Route: 048

REACTIONS (2)
  - ADVERSE DRUG REACTION [None]
  - HYPOTENSION [None]
